FAERS Safety Report 7652474-0 (Version None)
Quarter: 2011Q3

REPORT INFORMATION
  Report Type: 
  Country: None (occurrence: None)
  Receive Date: 20110803
  Receipt Date: 20110722
  Transmission Date: 20111222
  Serious: Yes (Other)
  Sender: FDA-Public Use
  Company Number: US-AMGEN-USASP2011037443

PATIENT
  Sex: Female

DRUGS (1)
  1. ENBREL [Suspect]
     Indication: RHEUMATOID ARTHRITIS
     Dosage: 50 MG, QWK
     Dates: start: 20070202, end: 20100901

REACTIONS (5)
  - PULMONARY FIBROSIS [None]
  - MYCOBACTERIAL INFECTION [None]
  - PRODUCTIVE COUGH [None]
  - PAINFUL RESPIRATION [None]
  - LUNG INFECTION [None]
